FAERS Safety Report 8582024-6 (Version None)
Quarter: 2012Q3

REPORT INFORMATION
  Report Type: 
  Country: None (occurrence: None)
  Receive Date: 20120809
  Receipt Date: 20120806
  Transmission Date: 20120928
  Serious: Yes (Other)
  Sender: FDA-Public Use
  Company Number: KR-PFIZER INC-2012190096

PATIENT
  Sex: Female

DRUGS (2)
  1. CADUET [Suspect]
     Indication: HYPERLIPIDAEMIA
  2. CADUET [Suspect]
     Indication: HYPERTENSION
     Dosage: UNK
     Route: 048
     Dates: start: 20090101

REACTIONS (2)
  - CELLULITIS [None]
  - OEDEMA PERIPHERAL [None]
